FAERS Safety Report 17662209 (Version 1)
Quarter: 2020Q2

REPORT INFORMATION
  Report Type: Spontaneous
  Country: DK (occurrence: DK)
  Receive Date: 20200413
  Receipt Date: 20200413
  Transmission Date: 20200713
  Serious: Yes (Hospitalization)
  Sender: FDA-Public Use
  Company Number: DK-TEVA-2020-DK-1222963

PATIENT
  Age: 97 Year
  Sex: Female

DRUGS (8)
  1. MELATONIN [Concomitant]
     Active Substance: MELATONIN
     Indication: INSOMNIA
     Dosage: STRENGTH: 3 MG?DOSAGE: 1 TABLET AS NEEDED, AT MOST ONCE DAILY.
     Route: 048
     Dates: start: 20191220
  2. PAMOL [Concomitant]
     Active Substance: ACETAMINOPHEN
     Indication: PAIN
     Dosage: STRENGTH: 500 MG; DOSE:4000 MG
     Route: 048
     Dates: start: 20200221
  3. PREGABALIN ^TEVA^ [Suspect]
     Active Substance: PREGABALIN
     Indication: PAIN
     Dosage: STRENGTH: 75 MG; DOSE: 150MG
     Route: 048
     Dates: start: 20200324, end: 20200327
  4. TRIMOPAN [Concomitant]
     Indication: PROPHYLAXIS URINARY TRACT INFECTION
     Dosage: STRENGTH : 100 MG, DOSE: 100 MG
     Route: 048
     Dates: start: 20161010
  5. PROPRANOLOL ^DAK^ [Concomitant]
     Indication: TREMOR
     Dosage: STRENGTH: 40 MG, DOSE: 80MG
     Route: 048
     Dates: start: 20130718
  6. CIPRAMIL [Concomitant]
     Indication: DEPRESSION
     Dosage: STRENGTH: 10 MG; DOSE: 10 MG
     Route: 048
     Dates: start: 20200210
  7. SKINOREN [Concomitant]
     Active Substance: AZELAIC ACID
     Indication: ACNE
     Dosage: STRENGTH : 20 %, DOSE: 1 DOSAGE FORMS
     Route: 003
     Dates: start: 20160705
  8. CALCIUM OG D-VITAMIN [Concomitant]
     Indication: MINERAL SUPPLEMENTATION
     Dosage: STRENGTH: 400 MG + 19 UG, DOSE: 2 DOSAGE FORMS
     Route: 048
     Dates: start: 20200127

REACTIONS (3)
  - Fall [Recovered/Resolved]
  - Dizziness [Not Recovered/Not Resolved]
  - Hip fracture [Recovering/Resolving]

NARRATIVE: CASE EVENT DATE: 20200326
